FAERS Safety Report 7971783-9 (Version None)
Quarter: 2011Q4

REPORT INFORMATION
  Report Type: 
  Country: None (occurrence: None)
  Receive Date: 20111212
  Receipt Date: 20111201
  Transmission Date: 20120403
  Serious: Yes (Hospitalization)
  Sender: FDA-Public Use
  Company Number: US-CELGENEUS-163-21880-11120346

PATIENT
  Sex: Male
  Weight: 85.806 kg

DRUGS (10)
  1. METOPROLOL TARTRATE [Concomitant]
     Route: 065
  2. PREDNISONE [Concomitant]
     Route: 065
  3. MAGNESIUM OXIDE [Concomitant]
     Route: 065
  4. MULTI-VITAMINS [Concomitant]
     Route: 065
  5. REVLIMID [Suspect]
     Indication: MULTIPLE MYELOMA
     Dosage: 25 MILLIGRAM
     Route: 048
     Dates: start: 20100226
  6. REVLIMID [Suspect]
     Dosage: 15 MILLIGRAM
     Route: 048
     Dates: start: 20101001
  7. REVLIMID [Suspect]
     Route: 048
     Dates: start: 20111101
  8. ASPIRIN [Concomitant]
     Dosage: 81 MILLIGRAM
     Route: 065
  9. HYDROCHLOROTHIAZIDE [Concomitant]
     Dosage: 25 MILLIGRAM
     Route: 065
  10. VITAMIN D [Concomitant]
     Route: 065

REACTIONS (4)
  - WHITE BLOOD CELL COUNT DECREASED [None]
  - PHOTOPSIA [None]
  - HEADACHE [None]
  - HAEMOGLOBIN DECREASED [None]
